FAERS Safety Report 5754393-3 (Version None)
Quarter: 2008Q2

REPORT INFORMATION
  Report Type: 
  Country: None (occurrence: None)
  Receive Date: 20080530
  Receipt Date: 20080523
  Transmission Date: 20081010
  Serious: Yes (Disabling)
  Sender: FDA-Public Use
  Company Number: JP-PFIZER INC-2008034530

PATIENT
  Sex: Male

DRUGS (5)
  1. VIAGRA [Suspect]
     Indication: ERECTILE DYSFUNCTION
     Dosage: DAILY DOSE:50MG
     Route: 048
     Dates: start: 20070101, end: 20071003
  2. PRAVASTATIN SODIUM [Suspect]
     Route: 048
  3. LEXOTAN [Suspect]
     Route: 048
  4. PAXIL [Suspect]
     Route: 048
  5. OTHER HYPNOTICS AND SEDATIVES [Suspect]
     Route: 048

REACTIONS (1)
  - ALTERED STATE OF CONSCIOUSNESS [None]
